FAERS Safety Report 24873970 (Version 1)
Quarter: 2025Q1

REPORT INFORMATION
  Report Type: Spontaneous
  Country: CA (occurrence: CA)
  Receive Date: 20250122
  Receipt Date: 20250122
  Transmission Date: 20250409
  Serious: Yes (Life-Threatening, Other)
  Sender: MYLAN
  Company Number: CA-MYLANLABS-2025M1005027

PATIENT
  Age: 32 Year
  Sex: Male
  Weight: 72 kg

DRUGS (1)
  1. CLOZAPINE [Suspect]
     Active Substance: CLOZAPINE
     Indication: Psychotic disorder
     Route: 048

REACTIONS (2)
  - Neutrophil count increased [Not Recovered/Not Resolved]
  - White blood cell count decreased [Not Recovered/Not Resolved]
